FAERS Safety Report 12548430 (Version 2)
Quarter: 2016Q3

REPORT INFORMATION
  Report Type: Report from Study
  Country: US (occurrence: US)
  Receive Date: 20160712
  Receipt Date: 20160916
  Transmission Date: 20161109
  Serious: Yes (Death, Hospitalization, Other)
  Sender: FDA-Public Use
  Company Number: US-ROCHE-1279017

PATIENT
  Age: 83 Year
  Sex: Female
  Weight: 69.91 kg

DRUGS (51)
  1. BEVACIZUMAB [Suspect]
     Active Substance: BEVACIZUMAB
     Dosage: COURSE 3
     Route: 042
     Dates: start: 20131002
  2. BEVACIZUMAB [Suspect]
     Active Substance: BEVACIZUMAB
     Dosage: COURSE 11
     Route: 042
     Dates: start: 20140521
  3. BEVACIZUMAB [Suspect]
     Active Substance: BEVACIZUMAB
     Dosage: COURSE 36
     Route: 042
     Dates: start: 20151229
  4. BEVACIZUMAB [Suspect]
     Active Substance: BEVACIZUMAB
     Dosage: COURSE 37
     Route: 042
     Dates: start: 20150120
  5. BEVACIZUMAB [Suspect]
     Active Substance: BEVACIZUMAB
     Dosage: COURSE 38
     Route: 042
     Dates: start: 20160210
  6. BEVACIZUMAB [Suspect]
     Active Substance: BEVACIZUMAB
     Dosage: COURSE 2
     Route: 042
     Dates: start: 20130821
  7. BEVACIZUMAB [Suspect]
     Active Substance: BEVACIZUMAB
     Dosage: COURSE 9
     Route: 042
     Dates: start: 20140409
  8. BEVACIZUMAB [Suspect]
     Active Substance: BEVACIZUMAB
     Dosage: COURSE 35
     Route: 042
     Dates: start: 20151202
  9. BEVACIZUMAB [Suspect]
     Active Substance: BEVACIZUMAB
     Dosage: COURSE 41
     Route: 042
     Dates: start: 20160427
  10. BEVACIZUMAB [Suspect]
     Active Substance: BEVACIZUMAB
     Dosage: COURSE 42
     Route: 042
     Dates: start: 20160518
  11. VELIPARIB [Suspect]
     Active Substance: VELIPARIB
     Dosage: COURSE 4
     Route: 048
     Dates: start: 20131106
  12. VELIPARIB [Suspect]
     Active Substance: VELIPARIB
     Dosage: COURSE 6
     Route: 048
     Dates: start: 20140129
  13. CARBOPLATIN. [Suspect]
     Active Substance: CARBOPLATIN
     Indication: OVARIAN CANCER
     Dosage: MOST RECENT DOSE ON 24/JUL//2013?OVER 30 MIN ON DAY 1
     Route: 042
     Dates: start: 20130724, end: 20140129
  14. BEVACIZUMAB [Suspect]
     Active Substance: BEVACIZUMAB
     Dosage: COURSE 8
     Route: 042
     Dates: start: 20140319
  15. BEVACIZUMAB [Suspect]
     Active Substance: BEVACIZUMAB
     Dosage: COURSE 13
     Route: 042
     Dates: start: 20140709
  16. BEVACIZUMAB [Suspect]
     Active Substance: BEVACIZUMAB
     Dosage: COURSE 15
     Route: 042
     Dates: start: 20140820
  17. BEVACIZUMAB [Suspect]
     Active Substance: BEVACIZUMAB
     Dosage: COURSE 18
     Route: 042
     Dates: start: 20141022
  18. BEVACIZUMAB [Suspect]
     Active Substance: BEVACIZUMAB
     Dosage: COURSE 20
     Route: 042
     Dates: start: 20141203
  19. BEVACIZUMAB [Suspect]
     Active Substance: BEVACIZUMAB
     Dosage: COURSE 29
     Route: 042
     Dates: start: 20150708
  20. BEVACIZUMAB [Suspect]
     Active Substance: BEVACIZUMAB
     Dosage: COURSE 32
     Route: 042
     Dates: start: 20150916
  21. BEVACIZUMAB [Suspect]
     Active Substance: BEVACIZUMAB
     Dosage: COURSE 34
     Route: 042
     Dates: start: 20151028
  22. VELIPARIB [Suspect]
     Active Substance: VELIPARIB
     Indication: OVARIAN CANCER
     Dosage: MOST RECENT DOSE 30/JUL/2013?DAY 1-7??COURSE 1
     Route: 048
     Dates: start: 20130724, end: 20140204
  23. VELIPARIB [Suspect]
     Active Substance: VELIPARIB
     Dosage: COURSE 2
     Route: 048
     Dates: start: 20130821
  24. BEVACIZUMAB [Suspect]
     Active Substance: BEVACIZUMAB
     Dosage: COURSE 16
     Route: 042
     Dates: start: 20140910
  25. BEVACIZUMAB [Suspect]
     Active Substance: BEVACIZUMAB
     Dosage: COURSE 26
     Route: 042
     Dates: start: 20150422
  26. BEVACIZUMAB [Suspect]
     Active Substance: BEVACIZUMAB
     Dosage: COURSE 33
     Route: 042
     Dates: start: 20151007
  27. BEVACIZUMAB [Suspect]
     Active Substance: BEVACIZUMAB
     Dosage: COURSE 40
     Route: 042
     Dates: start: 20160406
  28. BEVACIZUMAB [Suspect]
     Active Substance: BEVACIZUMAB
     Dosage: COURSE 17
     Route: 042
     Dates: start: 20141001
  29. BEVACIZUMAB [Suspect]
     Active Substance: BEVACIZUMAB
     Dosage: COURSE 6
     Route: 042
     Dates: start: 20140129
  30. BEVACIZUMAB [Suspect]
     Active Substance: BEVACIZUMAB
     Dosage: COURSE 7
     Route: 042
     Dates: start: 20140227
  31. BEVACIZUMAB [Suspect]
     Active Substance: BEVACIZUMAB
     Dosage: COURSE 14
     Route: 042
     Dates: start: 20140730
  32. BEVACIZUMAB [Suspect]
     Active Substance: BEVACIZUMAB
     Dosage: COURSE 24
     Route: 042
     Dates: start: 20150303
  33. BEVACIZUMAB [Suspect]
     Active Substance: BEVACIZUMAB
     Dosage: COURSE 31
     Route: 042
     Dates: start: 20150826
  34. BEVACIZUMAB [Suspect]
     Active Substance: BEVACIZUMAB
     Dosage: COURSE 43
     Route: 042
     Dates: start: 20160608
  35. LIPOSOMAL DAUNORUBICIN [Suspect]
     Active Substance: DAUNORUBICIN HYDROCHLORIDE
     Indication: OVARIAN CANCER
     Dosage: MOST RECENT DOSE ON 24/JUL//2013
     Route: 042
     Dates: start: 20130724, end: 20140129
  36. BEVACIZUMAB [Suspect]
     Active Substance: BEVACIZUMAB
     Indication: OVARIAN CANCER
     Dosage: MOST RECENT DOSE ON 07/AUG/2013??COURSE 1
     Route: 042
     Dates: start: 20130724
  37. BEVACIZUMAB [Suspect]
     Active Substance: BEVACIZUMAB
     Dosage: COURSE 4
     Route: 042
     Dates: start: 20131106
  38. BEVACIZUMAB [Suspect]
     Active Substance: BEVACIZUMAB
     Dosage: COURSE 10
     Route: 042
     Dates: start: 20140430
  39. BEVACIZUMAB [Suspect]
     Active Substance: BEVACIZUMAB
     Dosage: COURSE 21
     Route: 042
     Dates: start: 20141230
  40. BEVACIZUMAB [Suspect]
     Active Substance: BEVACIZUMAB
     Dosage: COURSE 23
     Route: 042
     Dates: start: 20150218
  41. BEVACIZUMAB [Suspect]
     Active Substance: BEVACIZUMAB
     Dosage: COURSE 27
     Route: 042
     Dates: start: 20150527
  42. BEVACIZUMAB [Suspect]
     Active Substance: BEVACIZUMAB
     Dosage: COURSE 5
     Route: 042
     Dates: start: 20131218
  43. BEVACIZUMAB [Suspect]
     Active Substance: BEVACIZUMAB
     Dosage: COURSE 12
     Route: 042
     Dates: start: 20140618
  44. BEVACIZUMAB [Suspect]
     Active Substance: BEVACIZUMAB
     Dosage: COURSE 19
     Route: 042
     Dates: start: 20141112
  45. BEVACIZUMAB [Suspect]
     Active Substance: BEVACIZUMAB
     Dosage: COURSE 22
     Route: 042
     Dates: start: 20150121
  46. BEVACIZUMAB [Suspect]
     Active Substance: BEVACIZUMAB
     Dosage: COURSE 25
     Route: 042
     Dates: start: 20150401
  47. BEVACIZUMAB [Suspect]
     Active Substance: BEVACIZUMAB
     Dosage: COURSE 28
     Route: 042
     Dates: start: 20150617
  48. BEVACIZUMAB [Suspect]
     Active Substance: BEVACIZUMAB
     Dosage: COURSE 30
     Route: 042
     Dates: start: 20150729
  49. BEVACIZUMAB [Suspect]
     Active Substance: BEVACIZUMAB
     Dosage: COURSE 39
     Route: 042
  50. VELIPARIB [Suspect]
     Active Substance: VELIPARIB
     Dosage: COURSE 3
     Route: 048
     Dates: start: 20131002
  51. VELIPARIB [Suspect]
     Active Substance: VELIPARIB
     Dosage: COURSE 5
     Route: 048
     Dates: start: 20131218

REACTIONS (8)
  - Death [Fatal]
  - Abdominal pain [Unknown]
  - Hypokalaemia [Unknown]
  - White blood cell count decreased [Unknown]
  - Pyrexia [Unknown]
  - Neutrophil count decreased [Unknown]
  - Hypertension [Unknown]
  - Sepsis [Unknown]

NARRATIVE: CASE EVENT DATE: 20160616
